FAERS Safety Report 5003152-8 (Version None)
Quarter: 2006Q2

REPORT INFORMATION
  Report Type: 
  Country: None (occurrence: None)
  Receive Date: 20060516
  Receipt Date: 20060503
  Transmission Date: 20061013
  Serious: Yes (Hospitalization, Other)
  Sender: FDA-Public Use
  Company Number: AU-NOVOPROD-253065

PATIENT
  Age: 70 Year
  Sex: Male
  Weight: 70 kg

DRUGS (12)
  1. NOVOSEVEN [Suspect]
     Indication: OPERATIVE HAEMORRHAGE
     Dosage: 6 UNK, UNK
     Dates: start: 20040914
  2. BLOOD CELLS, PACKED HUMAN [Concomitant]
     Dosage: 8 IU SINGLE PRIOR TO NOVOSEVEN TREATMENT
  3. FRESH FROZEN PLASMA [Concomitant]
     Dosage: 4 IU POST TREATMENT WITH NOVOSEVEN
  4. FRESH FROZEN PLASMA [Concomitant]
     Dosage: 4 UNK, UNK
  5. CRYOPRECIPITATES [Concomitant]
     Dosage: 6 IU PRIOR TO TREATMENT WITH NOVOSEVEN
  6. PLATELETS [Concomitant]
     Dosage: 4 IU POST TREATMENT WITH NOVOSEVEN
  7. PLATELETS [Concomitant]
     Dosage: 4 UNK, UNK
  8. GELOFUSINE                         /00203801/ [Concomitant]
  9. CRYSTALLOIDS [Concomitant]
  10. TRASYLOL [Concomitant]
     Dosage: PRIOR TO TREATMENT WITH NOVOSEVEN
  11. PROTAMINE [Concomitant]
     Dosage: PRIOR TO TREATMENT WITH NOVOSEVEN
  12. DDAVP                              /00361901/ [Concomitant]
     Dosage: PRIOR TO TREATMENT WITH NOVOSEVEN

REACTIONS (3)
  - CEREBROVASCULAR ACCIDENT [None]
  - PNEUMONIA ASPIRATION [None]
  - RESPIRATORY FAILURE [None]
